FAERS Safety Report 7626656-8 (Version None)
Quarter: 2011Q3

REPORT INFORMATION
  Report Type: 
  Country: None (occurrence: None)
  Receive Date: 20110714
  Receipt Date: 20110629
  Transmission Date: 20111222
  Serious: Yes (Hospitalization, Other)
  Sender: FDA-Public Use
  Company Number: AUR-APL-2011-03982

PATIENT
  Age: 22 Year
  Sex: Female

DRUGS (3)
  1. SUMATRIPTAN SUCCINATE [Suspect]
     Indication: PRODUCT USED FOR UNKNOWN INDICATION
     Dosage: 2 DOESE OF 50 MG,  (2 DOSAGE FORMS)
  2. FLUOXETINE [Suspect]
     Indication: PRODUCT USED FOR UNKNOWN INDICATION
     Dosage: FOR 1 YEAR (40 MG, 1 D)
  3. AMITRIPTYLINE HCL [Suspect]
     Indication: PRODUCT USED FOR UNKNOWN INDICATION
     Dosage: (50 MG, 1 D)

REACTIONS (4)
  - SEROTONIN SYNDROME [None]
  - MIGRAINE [None]
  - DISORIENTATION [None]
  - RESPIRATORY RATE INCREASED [None]
